FAERS Safety Report 7131989-8 (Version None)
Quarter: 2010Q4

REPORT INFORMATION
  Report Type: 
  Country: None (occurrence: None)
  Receive Date: 20101202
  Receipt Date: 20101123
  Transmission Date: 20110411
  Serious: Yes (Hospitalization)
  Sender: FDA-Public Use
  Company Number: BR-ASTRAZENECA-2010SE03673

PATIENT
  Age: 57 Year
  Sex: Male
  Weight: 85 kg

DRUGS (2)
  1. ATACAND [Suspect]
     Indication: RENAL DISORDER
     Route: 048
     Dates: start: 20070101
  2. ARA-2 [Concomitant]
     Indication: RENAL DISORDER
     Dosage: DAILY
     Route: 048
     Dates: start: 20040101

REACTIONS (1)
  - ARTERIAL DISORDER [None]
